FAERS Safety Report 4383452-5 (Version None)
Quarter: 2004Q2

REPORT INFORMATION
  Report Type: 
  Country: None (occurrence: None)
  Receive Date: 20040622
  Receipt Date: 20040622
  Transmission Date: 20050107
  Serious: No
  Sender: FDA-Public Use
  Company Number: None

PATIENT
  Sex: Male

DRUGS (1)
  1. OMEPRAZOLE [Suspect]
     Indication: PEPTIC ULCER
     Dosage: 20 MG Q D PO
     Route: 048
     Dates: start: 20040219, end: 20040319

REACTIONS (1)
  - DRUG INEFFECTIVE [None]
